FAERS Safety Report 7985767-8 (Version None)
Quarter: 2011Q4

REPORT INFORMATION
  Report Type: 
  Country: None (occurrence: None)
  Receive Date: 20111216
  Receipt Date: 20111210
  Transmission Date: 20120403
  Serious: Yes (Death, Hospitalization, Other)
  Sender: FDA-Public Use
  Company Number: US-ELI_LILLY_AND_COMPANY-US201110003064

PATIENT
  Sex: Male
  Weight: 102 kg

DRUGS (8)
  1. ASPIRIN [Concomitant]
     Dosage: 81 MG, QD
     Route: 048
  2. EFFIENT [Suspect]
     Indication: STENT PLACEMENT
     Dosage: 10 MG, QD
     Route: 048
     Dates: start: 20110110, end: 20110512
  3. SIMVASTATIN [Concomitant]
     Dosage: 80 MG, UNK
  4. CARVEDILOL [Concomitant]
     Dosage: 12.5 MG, BID
     Route: 048
  5. FERROUS SULFATE TAB [Concomitant]
     Dosage: 325 MG, BID, WITH MEALS
  6. LORATADINE [Concomitant]
     Dosage: 10 MG, QD
     Route: 048
  7. ALCOHOL [Concomitant]
     Dosage: 14 UNK, UNK
  8. LISINOPRIL [Concomitant]
     Dosage: 10 MG, QD
     Route: 048

REACTIONS (3)
  - HAEMORRHAGE INTRACRANIAL [None]
  - HOSPICE CARE [None]
  - HEMIPARESIS [None]
